FAERS Safety Report 17467997 (Version 2)
Quarter: 2020Q2

REPORT INFORMATION
  Report Type: Spontaneous
  Country: US (occurrence: US)
  Receive Date: 20200227
  Receipt Date: 20200527
  Transmission Date: 20200713
  Serious: Yes (Other)
  Sender: FDA-Public Use
  Company Number: US-PFIZER INC-2020085627

PATIENT
  Age: 56 Year
  Sex: Female
  Weight: 53.52 kg

DRUGS (4)
  1. NALBUPHINE HYDROCHLORIDE. [Suspect]
     Active Substance: NALBUPHINE HYDROCHLORIDE
     Indication: MUSCULOSKELETAL PAIN
  2. NALBUPHINE HYDROCHLORIDE. [Suspect]
     Active Substance: NALBUPHINE HYDROCHLORIDE
     Indication: MIGRAINE
     Dosage: 20 MG, AS NEEDED (BY INJECTION AS NEEDED EVERY 6 HOURS)
  3. NALBUPHINE HYDROCHLORIDE. [Suspect]
     Active Substance: NALBUPHINE HYDROCHLORIDE
     Indication: BACK PAIN
  4. NALBUPHINE HYDROCHLORIDE. [Suspect]
     Active Substance: NALBUPHINE HYDROCHLORIDE
     Indication: HEADACHE

REACTIONS (6)
  - Exostosis [Unknown]
  - Weight decreased [Unknown]
  - Necrosis [Unknown]
  - Rotator cuff syndrome [Unknown]
  - Post procedural infection [Unknown]
  - Clavicle fracture [Unknown]

NARRATIVE: CASE EVENT DATE: 202001
